FAERS Safety Report 9339236 (Version 1)
Quarter: 2013Q2

REPORT INFORMATION
  Report Type: Spontaneous
  Country: US (occurrence: None)
  Receive Date: 20130606
  Receipt Date: 20130606
  Transmission Date: 20140414
  Serious: No
  Sender: FDA-Public Use
  Company Number: None

PATIENT
  Age: 51 Year
  Sex: Male
  Weight: 79.38 kg

DRUGS (14)
  1. CEFTRIAXONE [Suspect]
     Route: 041
     Dates: start: 20130520, end: 20130528
  2. CEFTRIAXONE [Suspect]
     Route: 041
     Dates: start: 20130520, end: 20130528
  3. CALCIUM [Concomitant]
  4. DOCUSATE SODIUM [Concomitant]
  5. FERROUS SULFATE [Concomitant]
  6. FORTEO [Concomitant]
  7. LACTINIX [Concomitant]
  8. LORTAB [Concomitant]
  9. METOPROLOL [Concomitant]
  10. PLAQEUNAL [Concomitant]
  11. PREDNISONE [Concomitant]
  12. RESTASIS [Concomitant]
  13. VITAMIN D [Concomitant]
  14. CYCLOBENZAPRINE [Concomitant]

REACTIONS (1)
  - Rash [None]
